FAERS Safety Report 6613359-1 (Version None)
Quarter: 2010Q1

REPORT INFORMATION
  Report Type: 
  Country: None (occurrence: None)
  Receive Date: 20100304
  Receipt Date: 20100225
  Transmission Date: 20100710
  Serious: Yes (Hospitalization, Disabling, Other)
  Sender: FDA-Public Use
  Company Number: PHHO2008DE12439

PATIENT
  Sex: Male
  Weight: 180 kg

DRUGS (10)
  1. ZOLEDRONATE T29581+SOLINJ+BM [Suspect]
     Indication: METASTASES TO BONE
     Dosage: 4MG EVERY 3 MONTHS
     Route: 042
     Dates: start: 20050713, end: 20080619
  2. ANTIBIOTICS [Suspect]
  3. SANDOCAL [Concomitant]
  4. LUTEINIZING HORMONE-RELEASING HORMONE [Concomitant]
  5. VITAMIN D [Concomitant]
  6. CYMBALTA [Concomitant]
     Indication: DEPRESSION
  7. RADIOTHERAPY [Concomitant]
  8. HORMONES [Concomitant]
  9. ELIGARD [Concomitant]
     Indication: PROSTATE CANCER
  10. ASPIRIN [Concomitant]
     Indication: PROPHYLAXIS

REACTIONS (27)
  - ACTIVITIES OF DAILY LIVING IMPAIRED [None]
  - BACTERIAL INFECTION [None]
  - BONE DISORDER [None]
  - BONE FRAGMENTATION [None]
  - BONE PAIN [None]
  - DIARRHOEA [None]
  - ERYTHEMA [None]
  - IMPAIRED HEALING [None]
  - INFILTRATION ANAESTHESIA [None]
  - LOCAL SWELLING [None]
  - MASTICATION DISORDER [None]
  - MUCOSAL INFECTION [None]
  - OSTEITIS [None]
  - OSTEOLYSIS [None]
  - OSTEONECROSIS [None]
  - PAIN [None]
  - PEPTOSTREPTOCOCCUS INFECTION [None]
  - PROSTHESIS IMPLANTATION [None]
  - SECRETION DISCHARGE [None]
  - SEQUESTRECTOMY [None]
  - SLEEP DISORDER [None]
  - SPEECH DISORDER [None]
  - TOOTH EXTRACTION [None]
  - VEILLONELLA INFECTION [None]
  - WEIGHT DECREASED [None]
  - WOUND DEHISCENCE [None]
  - WOUND TREATMENT [None]
